FAERS Safety Report 8972047 (Version 1)
Quarter: 2012Q4

REPORT INFORMATION
  Report Type: 
  Country: GB (occurrence: GB)
  Receive Date: 20121218
  Receipt Date: 20121218
  Transmission Date: 20130627
  Serious: Yes (Hospitalization)
  Sender: FDA-Public Use
  Company Number: GB-UCBSA-072055

PATIENT
  Age: 57 Year
  Sex: Male
  Weight: 80 kg

DRUGS (4)
  1. CIMZIA [Suspect]
     Indication: RHEUMATOID ARTHRITIS
     Route: 058
     Dates: start: 20120801, end: 20121120
  2. METHOTREXATE [Concomitant]
     Indication: RHEUMATOID ARTHRITIS
     Dosage: ON SATURDAYS
     Route: 048
  3. FOLIC ACID [Concomitant]
     Indication: RHEUMATOID ARTHRITIS
     Dosage: ON MONDAYS
     Route: 048
  4. CO-CODAMOL [Concomitant]
     Dosage: 30/500 MG

REACTIONS (4)
  - Angina pectoris [Recovered/Resolved]
  - Chest discomfort [Unknown]
  - Coronary artery stenosis [Unknown]
  - Electrocardiogram ST segment depression [Unknown]
